FAERS Safety Report 18084734 (Version 1)
Quarter: 2020Q3

REPORT INFORMATION
  Report Type: Spontaneous
  Country: DE (occurrence: DE)
  Receive Date: 20200729
  Receipt Date: 20200729
  Transmission Date: 20201103
  Serious: Yes (Hospitalization)
  Sender: FDA-Public Use
  Company Number: DE-DRREDDYS-GER/GER/20/0125439

PATIENT
  Age: 13 Year
  Sex: Female
  Weight: 67 kg

DRUGS (3)
  1. IBUPROFEN. [Suspect]
     Active Substance: IBUPROFEN
     Indication: SUICIDAL IDEATION
     Dosage: DAILY DOSE: 200 MG MILLGRAM(S) EVERY 2 TOTAL
     Route: 048
     Dates: start: 20200215
  2. IBUPROFEN. [Suspect]
     Active Substance: IBUPROFEN
     Indication: SUICIDAL IDEATION
     Dosage: DAILY DOSE: 600 MG MILLGRAM(S) EVERY 5 TOTAL
     Route: 048
     Dates: start: 20200215
  3. VALPROIC ACID. [Suspect]
     Active Substance: VALPROIC ACID
     Indication: SUICIDAL IDEATION
     Dosage: 3?5 TABLETTEN
     Route: 048
     Dates: start: 20200215

REACTIONS (1)
  - Intentional overdose [Recovered/Resolved]

NARRATIVE: CASE EVENT DATE: 20200215
